FAERS Safety Report 8774041 (Version 5)
Quarter: 2013Q3

REPORT INFORMATION
  Report Type: Spontaneous
  Country: US (occurrence: US)
  Receive Date: 20120908
  Receipt Date: 20130909
  Transmission Date: 20140515
  Serious: Yes (Hospitalization, Other)
  Sender: FDA-Public Use
  Company Number: US-009507513-1208USA012028

PATIENT
  Sex: Female

DRUGS (6)
  1. FOSAMAX [Suspect]
     Indication: OSTEOPOROSIS
     Dosage: 70 MG,QW
     Route: 048
     Dates: start: 20050410, end: 200809
  2. FOSAMAX [Suspect]
     Indication: OSTEOPENIA
  3. ALENDRONATE SODIUM [Suspect]
     Indication: OSTEOPOROSIS
     Dosage: 70 MG, QW
     Route: 048
     Dates: start: 20080929, end: 201010
  4. ASCORBIC ACID [Concomitant]
     Dosage: 500 MG, UNK
     Dates: start: 2000, end: 2008
  5. ARIMIDEX [Concomitant]
     Indication: BREAST CANCER
     Dosage: UNK
     Dates: start: 2005, end: 2008
  6. PROMETHAZINE [Concomitant]
     Indication: HYPERSENSITIVITY
     Dosage: UNK
     Dates: start: 2009

REACTIONS (32)
  - Femur fracture [Unknown]
  - Intramedullary rod insertion [Unknown]
  - Femur fracture [Unknown]
  - Fall [Unknown]
  - Spinal laminectomy [Unknown]
  - Femur fracture [Unknown]
  - Low turnover osteopathy [Unknown]
  - Tooth extraction [Unknown]
  - Blood cholesterol increased [Unknown]
  - Foot fracture [Unknown]
  - Pain [Unknown]
  - Depression [Unknown]
  - Infection [Unknown]
  - Irritable bowel syndrome [Unknown]
  - Inflammation [Unknown]
  - Infection [Unknown]
  - Neuralgia [Unknown]
  - Infection [Unknown]
  - Asthma [Unknown]
  - Musculoskeletal stiffness [Unknown]
  - Infection [Unknown]
  - Infection [Unknown]
  - Insomnia [Unknown]
  - Lumbar radiculopathy [Unknown]
  - Spinal column stenosis [Unknown]
  - Meniscus injury [Unknown]
  - Enchondroma [Unknown]
  - Inflammation [Unknown]
  - Back pain [Unknown]
  - Pruritus [Unknown]
  - Pain in extremity [Unknown]
  - Arthralgia [Unknown]
